FAERS Safety Report 5083892-5 (Version None)
Quarter: 2006Q3

REPORT INFORMATION
  Report Type: 
  Country: None (occurrence: None)
  Receive Date: 20060727
  Receipt Date: 20060410
  Transmission Date: 20061208
  Serious: Yes (Other)
  Sender: FDA-Public Use
  Company Number: 2006051412

PATIENT
  Age: 85 Year
  Sex: Female
  Weight: 74.8435 kg

DRUGS (5)
  1. LYRICA [Suspect]
     Indication: NEUROPATHY
     Dosage: 150 MG (75 MG, 2 IN 1 D)
     Dates: start: 20060406
  2. VYTORIN [Concomitant]
  3. LISINOPRIL [Concomitant]
  4. HYDROCHLOROTHIAZIDE [Concomitant]
  5. VITAMINS (VITAMINS) [Concomitant]

REACTIONS (2)
  - DRUG EFFECT DECREASED [None]
  - EARLY MORNING AWAKENING [None]
